FAERS Safety Report 9078375 (Version 1)
Quarter: 2013Q1

REPORT INFORMATION
  Report Type: Report from Study
  Country: US (occurrence: US)
  Receive Date: 20130215
  Receipt Date: 20130215
  Transmission Date: 20140127
  Serious: Yes (Hospitalization, Other)
  Sender: FDA-Public Use
  Company Number: US-ABBOTT-13P-163-1047631-00

PATIENT
  Age: 66 Year
  Sex: Male

DRUGS (25)
  1. HUMIRA [Suspect]
     Indication: CROHN^S DISEASE
     Dates: end: 20111129
  2. HUMIRA [Suspect]
     Route: 058
     Dates: start: 201208
  3. BALSALAZIDE [Concomitant]
     Indication: PRODUCT USED FOR UNKNOWN INDICATION
  4. VITAMINS [Concomitant]
     Indication: PRODUCT USED FOR UNKNOWN INDICATION
  5. PREDNISONE [Concomitant]
     Indication: PRODUCT USED FOR UNKNOWN INDICATION
  6. ANTIBIOTICS [Concomitant]
     Indication: CROHN^S DISEASE
  7. CYMBALTA [Concomitant]
     Indication: PRODUCT USED FOR UNKNOWN INDICATION
  8. METHOTREXATE [Concomitant]
     Indication: PSORIATIC ARTHROPATHY
  9. FOLIC ACID [Concomitant]
     Indication: PRODUCT USED FOR UNKNOWN INDICATION
  10. FLEXERIL [Concomitant]
     Indication: PRODUCT USED FOR UNKNOWN INDICATION
  11. IBUPROFEN [Concomitant]
     Indication: PRODUCT USED FOR UNKNOWN INDICATION
  12. ZYRTEC [Concomitant]
     Indication: PRODUCT USED FOR UNKNOWN INDICATION
  13. PRILOSEC [Concomitant]
     Indication: PRODUCT USED FOR UNKNOWN INDICATION
  14. PATADAY [Concomitant]
     Indication: PRODUCT USED FOR UNKNOWN INDICATION
  15. ZANTAC [Concomitant]
     Indication: PRODUCT USED FOR UNKNOWN INDICATION
  16. RESTASIS [Concomitant]
     Indication: PRODUCT USED FOR UNKNOWN INDICATION
  17. TOPAMAX [Concomitant]
     Indication: PRODUCT USED FOR UNKNOWN INDICATION
  18. LASIX [Concomitant]
     Indication: PRODUCT USED FOR UNKNOWN INDICATION
  19. SYNTHROID [Concomitant]
     Indication: PRODUCT USED FOR UNKNOWN INDICATION
  20. KLOR-CON [Concomitant]
     Indication: PRODUCT USED FOR UNKNOWN INDICATION
  21. PRAVACHOL [Concomitant]
     Indication: PRODUCT USED FOR UNKNOWN INDICATION
  22. VITAMIN D-3 [Concomitant]
     Indication: PRODUCT USED FOR UNKNOWN INDICATION
  23. OMNARIS [Concomitant]
     Indication: PRODUCT USED FOR UNKNOWN INDICATION
  24. MULTIPLE VITAMIN [Concomitant]
     Indication: PRODUCT USED FOR UNKNOWN INDICATION
  25. HYDROCORTISONE ACETATE CREAM [Concomitant]
     Indication: PRODUCT USED FOR UNKNOWN INDICATION

REACTIONS (6)
  - Nerve injury [Recovered/Resolved with Sequelae]
  - Cervical vertebral fracture [Recovered/Resolved with Sequelae]
  - Pelvic fracture [Recovered/Resolved with Sequelae]
  - Spinal fracture [Recovered/Resolved with Sequelae]
  - Road traffic accident [Recovered/Resolved]
  - Sinusitis [Recovered/Resolved]
